FAERS Safety Report 5698547-3 (Version None)
Quarter: 2008Q2

REPORT INFORMATION
  Report Type: 
  Country: None (occurrence: None)
  Receive Date: 20080408
  Receipt Date: 20060907
  Transmission Date: 20081010
  Serious: No
  Sender: FDA-Public Use
  Company Number: US-BAYER-US-2006-026280

PATIENT
  Age: 71 Year
  Sex: Female
  Weight: 73 kg

DRUGS (3)
  1. CLIMARA [Suspect]
     Indication: HORMONE REPLACEMENT THERAPY
     Route: 062
     Dates: start: 20030101
  2. NEXIUM [Concomitant]
     Indication: GASTROOESOPHAGEAL REFLUX DISEASE
     Dosage: UNIT DOSE: 40 MG
  3. CHOLESTEROL [Concomitant]
     Indication: BLOOD CHOLESTEROL INCREASED

REACTIONS (2)
  - MELANOCYTIC NAEVUS [None]
  - SKIN DISCOLOURATION [None]
